FAERS Safety Report 18697298 (Version 1)
Quarter: 2021Q1

REPORT INFORMATION
  Report Type: Spontaneous
  Country: US (occurrence: US)
  Receive Date: 20210104
  Receipt Date: 20210104
  Transmission Date: 20210419
  Serious: Yes (Other)
  Sender: FDA-Public Use
  Company Number: US-PURDUE-USA-2020-0191830

PATIENT
  Sex: Male
  Weight: 210 kg

DRUGS (7)
  1. VICODIN [Suspect]
     Active Substance: ACETAMINOPHEN\HYDROCODONE BITARTRATE
     Indication: PRODUCT USED FOR UNKNOWN INDICATION
     Dosage: UNKNOWN
     Route: 065
  2. HYDROCODONE BITARTRATE AND ACETAMINOPHEN [Suspect]
     Active Substance: ACETAMINOPHEN\HYDROCODONE BITARTRATE
     Indication: BACK PAIN
     Dosage: UNKNOWN
     Route: 048
  3. SUBOXONE [Suspect]
     Active Substance: BUPRENORPHINE HYDROCHLORIDE\NALOXONE HYDROCHLORIDE
     Indication: PRODUCT USED FOR UNKNOWN INDICATION
     Dosage: UNKNOWN
     Route: 065
  4. OXYCODONE/ ACETAMINOPHEN TABLETS [Suspect]
     Active Substance: ACETAMINOPHEN\OXYCODONE HYDROCHLORIDE
     Indication: BACK PAIN
     Dosage: UNKNOWN
     Route: 048
  5. OXYCONTIN [Suspect]
     Active Substance: OXYCODONE HYDROCHLORIDE
     Indication: BACK PAIN
     Dosage: 500 MG, DAILY
     Route: 048
  6. BUPRENORPHINE TRANSDERMAL PATCH (SIMILAR TO NDA 21?306) [Suspect]
     Active Substance: BUPRENORPHINE
     Indication: BACK PAIN
     Dosage: UNKNOWN
     Route: 062
  7. TRAMADOL. [Suspect]
     Active Substance: TRAMADOL
     Indication: BACK PAIN
     Dosage: UNKNOWN
     Route: 048

REACTIONS (16)
  - Obsessive thoughts [Unknown]
  - Sexual dysfunction [Unknown]
  - Hallucination [Unknown]
  - Insomnia [Unknown]
  - Psychomotor hyperactivity [Unknown]
  - Emotional distress [Unknown]
  - Agitation [Unknown]
  - Eating disorder [Unknown]
  - Drug dependence [Unknown]
  - Substance abuse [Unknown]
  - Irritability [Unknown]
  - Flashback [Unknown]
  - Cerebral disorder [Unknown]
  - Tooth loss [Unknown]
  - Altered state of consciousness [Unknown]
  - Delusion [Unknown]
